FAERS Safety Report 24879983 (Version 1)
Quarter: 2025Q1

REPORT INFORMATION
  Report Type: Spontaneous
  Country: CN (occurrence: CN)
  Receive Date: 20250123
  Receipt Date: 20250123
  Transmission Date: 20250409
  Serious: Yes (Hospitalization, Other)
  Sender: FRESENIUS KABI
  Company Number: CN-FreseniusKabi-FK202501265

PATIENT
  Age: 17 Day
  Sex: Male
  Weight: 1 kg

DRUGS (7)
  1. SMOFLIPID [Suspect]
     Active Substance: FISH OIL\MEDIUM-CHAIN TRIGLYCERIDES\OLIVE OIL\SOYBEAN OIL
     Indication: Nutritional supplementation
     Dosage: FOA- INJECTION
     Route: 041
     Dates: start: 20250104, end: 20250112
  2. paediatric compound amino acid injection 19AA-I 25ml [Concomitant]
     Indication: Nutritional supplementation
     Route: 041
     Dates: start: 20250104
  3. DEXTROSE [Concomitant]
     Active Substance: DEXTROSE MONOHYDRATE
     Indication: Nutritional supplementation
     Route: 041
     Dates: start: 20250104
  4. DEXTROSE [Concomitant]
     Active Substance: DEXTROSE MONOHYDRATE
     Route: 041
     Dates: start: 20250104
  5. water soluble vitamin for injection 0.1 vial [Concomitant]
     Indication: Nutritional supplementation
     Route: 041
     Dates: start: 20250104
  6. fat soluble vitamin for injection 0.2 vial [Concomitant]
     Indication: Nutritional supplementation
     Route: 041
     Dates: start: 20250104
  7. SODIUM CHLORIDE [Concomitant]
     Active Substance: SODIUM CHLORIDE
     Indication: Nutritional supplementation
     Route: 041
     Dates: start: 20250104

REACTIONS (1)
  - Hyperlipidaemia [Recovered/Resolved]

NARRATIVE: CASE EVENT DATE: 20250111
